FAERS Safety Report 6703765-9 (Version None)
Quarter: 2010Q2

REPORT INFORMATION
  Report Type: 
  Country: None (occurrence: None)
  Receive Date: 20100428
  Receipt Date: 20100121
  Transmission Date: 20101027
  Serious: Yes (Hospitalization)
  Sender: FDA-Public Use
  Company Number: 003496

PATIENT
  Sex: Female
  Weight: 72.5 kg

DRUGS (10)
  1. CERTOLIZUMAB PEGOL (CDP870) [Suspect]
     Indication: RHEUMATOID ARTHRITIS
     Dosage: 400 MG 1X2 WEEKS SUBCUTANEOUS), (400 MG 1X2 WEEKS SUBCUTANEOUS), (200 MG 1X2 WEEKS SUBCUTANEOUS)
     Route: 058
     Dates: start: 20050817, end: 20060802
  2. CERTOLIZUMAB PEGOL (CDP870) [Suspect]
     Indication: RHEUMATOID ARTHRITIS
     Dosage: 400 MG 1X2 WEEKS SUBCUTANEOUS), (400 MG 1X2 WEEKS SUBCUTANEOUS), (200 MG 1X2 WEEKS SUBCUTANEOUS)
     Route: 058
     Dates: start: 20080521, end: 20091202
  3. CERTOLIZUMAB PEGOL (CDP870) [Suspect]
     Indication: RHEUMATOID ARTHRITIS
     Dosage: 400 MG 1X2 WEEKS SUBCUTANEOUS), (400 MG 1X2 WEEKS SUBCUTANEOUS), (200 MG 1X2 WEEKS SUBCUTANEOUS)
     Route: 058
     Dates: start: 20060816
  4. METHOTREXATE [Concomitant]
  5. ACIDUM FOLICUM [Concomitant]
  6. PREDNISONUM [Concomitant]
  7. OMEPRAZOLUM [Concomitant]
  8. RILMENIDINE [Concomitant]
  9. AMLODIPINE [Concomitant]
  10. PERINDOPRILUM [Concomitant]

REACTIONS (2)
  - ERYSIPELAS [None]
  - OSTEONECROSIS [None]
